FAERS Safety Report 9668901 (Version 1)
Quarter: 2013Q4

REPORT INFORMATION
  Report Type: Report from Study
  Country: AR (occurrence: AR)
  Receive Date: 20131105
  Receipt Date: 20131105
  Transmission Date: 20140711
  Serious: Yes (Death)
  Sender: FDA-Public Use
  Company Number: PHHY2013AR124892

PATIENT
  Sex: Female

DRUGS (1)
  1. RASILEZ D [Suspect]
     Dosage: 1 DF, DAILY (300 MG ALIS, 25 MG HYDR)
     Route: 048

REACTIONS (1)
  - Death [Fatal]
